FAERS Safety Report 6884972-1 (Version None)
Quarter: 2010Q3

REPORT INFORMATION
  Report Type: 
  Country: None (occurrence: None)
  Receive Date: 20100727
  Receipt Date: 20100712
  Transmission Date: 20110219
  Serious: Yes (Hospitalization)
  Sender: FDA-Public Use
  Company Number: CL-187-2010

PATIENT
  Age: 72 Year
  Sex: Female

DRUGS (6)
  1. SUNITINIB MALATE [Suspect]
     Indication: RENAL CELL CARCINOMA
     Dosage: 50 MG, ORAL
     Route: 048
     Dates: start: 20100105
  2. ONDANSETRON HCL [Suspect]
     Dosage: 12 MG, INTRAVENOUS
     Route: 042
     Dates: start: 20100514, end: 20100515
  3. SODIUM CHLORIDE 0.9% [Suspect]
     Indication: DEHYDRATION
     Dosage: INTRAVENOUS
     Route: 042
     Dates: start: 20100514, end: 20100515
  4. GUAIFENESIN [Suspect]
     Indication: COUGH
     Dosage: 40 ML, ORAL
     Route: 048
     Dates: start: 20100514, end: 20100515
  5. BENZONATATE [Suspect]
     Indication: COUGH
     Dosage: 300 MG, ORAL
     Route: 048
     Dates: start: 20100514, end: 20100515
  6. LEVOFLOXACIN [Concomitant]

REACTIONS (4)
  - DEHYDRATION [None]
  - HYPONATRAEMIA [None]
  - NAUSEA [None]
  - VOMITING [None]
